FAERS Safety Report 4551682-5 (Version None)
Quarter: 2005Q1

REPORT INFORMATION
  Report Type: 
  Country: None (occurrence: None)
  Receive Date: 20050111
  Receipt Date: 20041223
  Transmission Date: 20050727
  Serious: Yes (Other)
  Sender: FDA-Public Use
  Company Number: 2004238073US

PATIENT
  Age: 24 Year
  Sex: Male

DRUGS (2)
  1. BEXTRA [Suspect]
     Indication: ILL-DEFINED DISORDER
     Dosage: 10 MG
  2. CELEBREX [Concomitant]

REACTIONS (2)
  - ANAPHYLACTIC SHOCK [None]
  - BRUCELLOSIS [None]
